FAERS Safety Report 7602581-3 (Version None)
Quarter: 2011Q3

REPORT INFORMATION
  Report Type: 
  Country: None (occurrence: None)
  Receive Date: 20110712
  Receipt Date: 20110706
  Transmission Date: 20111222
  Serious: Yes (Death, Life-Threatening, Hospitalization)
  Sender: FDA-Public Use
  Company Number: CN-CELGENEUS-035-C5013-11070044

PATIENT
  Sex: Male
  Weight: 69 kg

DRUGS (5)
  1. LENALIDOMIDE [Suspect]
     Dosage: 10 MILLIGRAM
     Route: 048
     Dates: start: 20110620, end: 20110628
  2. DEXAMETHASONE [Suspect]
     Route: 065
     Dates: start: 20110620, end: 20110628
  3. ASPIRIN [Concomitant]
     Indication: THROMBOSIS PROPHYLAXIS
     Dosage: .1 GRAM
     Route: 048
     Dates: start: 20110314, end: 20110629
  4. DEXAMETHASONE [Suspect]
     Indication: MULTIPLE MYELOMA
     Dosage: 40 MILLIGRAM
     Route: 065
     Dates: start: 20110314
  5. LENALIDOMIDE [Suspect]
     Indication: MULTIPLE MYELOMA
     Dosage: 15 MILLIGRAM
     Route: 048
     Dates: start: 20110314

REACTIONS (3)
  - THROMBOCYTOPENIA [None]
  - LUNG INFECTION [None]
  - RENAL FAILURE CHRONIC [None]
